FAERS Safety Report 14007199 (Version 1)
Quarter: 2017Q3

REPORT INFORMATION
  Report Type: Report from Study
  Country: CN (occurrence: CN)
  Receive Date: 20170925
  Receipt Date: 20170925
  Transmission Date: 20171128
  Serious: Yes (Death)
  Sender: FDA-Public Use
  Company Number: CN-ROCHE-1998269

PATIENT

DRUGS (5)
  1. CICLOSPORINE A [Suspect]
     Active Substance: CYCLOSPORINE
     Indication: PROPHYLAXIS AGAINST GRAFT VERSUS HOST DISEASE
     Dosage: FOR 24 HOURS FROM DAY 1 BEFORE TRANSPLANTATION
     Route: 042
  2. MYCOPHENOLATE MOFETIL. [Suspect]
     Active Substance: MYCOPHENOLATE MOFETIL
     Indication: PROPHYLAXIS AGAINST GRAFT VERSUS HOST DISEASE
     Dosage: 0.6-1.0 G/M2 ON DAY 1-28
     Route: 048
  3. METHOTREXATE. [Suspect]
     Active Substance: METHOTREXATE
     Indication: PROPHYLAXIS AGAINST GRAFT VERSUS HOST DISEASE
     Dosage: FOR 24 HOURS ON DAY 1,3, AND 6
     Route: 042
  4. METHOTREXATE. [Suspect]
     Active Substance: METHOTREXATE
     Dosage: ON DAY 11
     Route: 042
  5. CICLOSPORINE A [Suspect]
     Active Substance: CYCLOSPORINE
     Dosage: 1 MONTH AFTER TRANSPLANTATION
     Route: 048

REACTIONS (2)
  - Lung infection [Fatal]
  - Leukaemia recurrent [Fatal]
